FAERS Safety Report 24625116 (Version 1)
Quarter: 2024Q4

REPORT INFORMATION
  Report Type: Spontaneous
  Country: US (occurrence: None)
  Receive Date: 20241115
  Receipt Date: 20241115
  Transmission Date: 20250115
  Serious: Yes (Death, Life-Threatening, Hospitalization)
  Sender: Public
  Company Number: None

PATIENT
  Age: 69 Year
  Sex: Male

DRUGS (1)
  1. ERBITUX [Suspect]
     Active Substance: CETUXIMAB
     Dates: start: 20241112, end: 20241112

REACTIONS (3)
  - Infusion related reaction [None]
  - Cardio-respiratory arrest [None]
  - Loss of consciousness [None]

NARRATIVE: CASE EVENT DATE: 20241112
